FAERS Safety Report 8510440-7 (Version None)
Quarter: 2012Q3

REPORT INFORMATION
  Report Type: 
  Country: None (occurrence: None)
  Receive Date: 20120714
  Receipt Date: 20120710
  Transmission Date: 20120928
  Serious: No
  Sender: FDA-Public Use
  Company Number: US-009507513-1207USA002499

PATIENT

DRUGS (1)
  1. NUVARING [Suspect]
     Indication: CONTRACEPTION
     Dosage: UNK, UNKNOWN
     Route: 067
     Dates: start: 20120401, end: 20120707

REACTIONS (4)
  - MOOD SWINGS [None]
  - HYPOAESTHESIA [None]
  - NAUSEA [None]
  - WEIGHT INCREASED [None]
